FAERS Safety Report 18373625 (Version 1)
Quarter: 2020Q4

REPORT INFORMATION
  Report Type: Spontaneous
  Country: FR (occurrence: FR)
  Receive Date: 20201012
  Receipt Date: 20201012
  Transmission Date: 20210114
  Serious: Yes (Hospitalization)
  Sender: FDA-Public Use
  Company Number: FR-INDIVIOR US-INDV-126669-2020

PATIENT
  Age: 33 Year
  Sex: Male

DRUGS (1)
  1. SUBUTEX [Suspect]
     Active Substance: BUPRENORPHINE HYDROCHLORIDE
     Indication: DRUG ABUSE
     Dosage: 18 MG, EVERY 2 DAYS
     Route: 042
     Dates: start: 2012, end: 20200704

REACTIONS (4)
  - Candida endophthalmitis [Recovering/Resolving]
  - Drug abuse [Not Recovered/Not Resolved]
  - Brachial artery entrapment syndrome [Not Recovered/Not Resolved]
  - Intentional product use issue [Recovered/Resolved]

NARRATIVE: CASE EVENT DATE: 2012
